FAERS Safety Report 14991163 (Version 1)
Quarter: 2018Q2

REPORT INFORMATION
  Report Type: Spontaneous
  Country: CA (occurrence: CA)
  Receive Date: 20180608
  Receipt Date: 20180608
  Transmission Date: 20180711
  Serious: Yes (Other)
  Sender: FDA-Public Use
  Company Number: CA-ROCHE-2136829

PATIENT
  Age: 57 Year
  Sex: Female

DRUGS (9)
  1. RESTASIS [Concomitant]
     Active Substance: CYCLOSPORINE
  2. RITUXAN [Suspect]
     Active Substance: RITUXIMAB
     Indication: PRODUCT USED FOR UNKNOWN INDICATION
     Dosage: THERAPY DURATION: 365 NOS
     Route: 042
  3. HUMIRA [Suspect]
     Active Substance: ADALIMUMAB
     Indication: RHEUMATOID ARTHRITIS
     Route: 058
  4. ACTEMRA [Suspect]
     Active Substance: TOCILIZUMAB
     Indication: PRODUCT USED FOR UNKNOWN INDICATION
     Dosage: THERAPY DURATION: 9 MONTHS
     Route: 065
  5. METHOTREXATE. [Suspect]
     Active Substance: METHOTREXATE
     Indication: PRODUCT USED FOR UNKNOWN INDICATION
     Route: 048
  6. SYNTHROID [Concomitant]
     Active Substance: LEVOTHYROXINE SODIUM
  7. HYDROXYCHLOROQUINE [Suspect]
     Active Substance: HYDROXYCHLOROQUINE
     Indication: PRODUCT USED FOR UNKNOWN INDICATION
     Route: 048
  8. PREDNISONE. [Concomitant]
     Active Substance: PREDNISONE
     Route: 048
  9. SULFASALAZINE. [Concomitant]
     Active Substance: SULFASALAZINE
     Route: 048

REACTIONS (10)
  - Inappropriate schedule of drug administration [Unknown]
  - Drug dose omission [Unknown]
  - Emotional disorder [Unknown]
  - Drug ineffective [Unknown]
  - Malignant melanoma [Unknown]
  - Rheumatoid arthritis [Unknown]
  - Drug effect incomplete [Unknown]
  - Mobility decreased [Unknown]
  - Animal bite [Unknown]
  - Herpes zoster [Unknown]
